FAERS Safety Report 9124998 (Version 2)
Quarter: 2013Q4

REPORT INFORMATION
  Report Type: Spontaneous
  Country: US (occurrence: US)
  Receive Date: 20130227
  Receipt Date: 20131004
  Transmission Date: 20140711
  Serious: Yes (Hospitalization)
  Sender: FDA-Public Use
  Company Number: US-B.I. PHARMACEUTICALS,INC./RIDGEFIELD-2013-BI-04669BP

PATIENT
  Age: 81 Year
  Sex: Female
  Weight: 74.39 kg

DRUGS (13)
  1. PRADAXA [Suspect]
     Indication: ANTICOAGULANT THERAPY
     Dosage: 300 MG
     Dates: start: 20120103, end: 20120626
  2. NORVASC [Concomitant]
     Dosage: 5 MG
  3. PROTONIX [Concomitant]
     Dosage: 40 MG
  4. SYNTHROID [Concomitant]
     Dosage: 150 MCG
  5. ASPIRIN [Concomitant]
     Dosage: 160 MG
  6. VYTORIN [Concomitant]
  7. METOPROLOL [Concomitant]
     Dosage: 50 MG
  8. HYZAAR [Concomitant]
  9. METFORMIN [Concomitant]
  10. B12 [Concomitant]
  11. DOCUSATE [Concomitant]
  12. CITRACAL [Concomitant]
  13. VITAMIN C [Concomitant]

REACTIONS (7)
  - Diverticulum intestinal haemorrhagic [Unknown]
  - Haematochezia [Unknown]
  - Coagulopathy [Unknown]
  - Haemorrhagic anaemia [Unknown]
  - Head injury [Unknown]
  - Fall [Unknown]
  - Syncope [Unknown]
